FAERS Safety Report 12908125 (Version 1)
Quarter: 2016Q4

REPORT INFORMATION
  Report Type: Spontaneous
  Country: US (occurrence: US)
  Receive Date: 20161103
  Receipt Date: 20161103
  Transmission Date: 20170207
  Serious: No
  Sender: FDA-Public Use
  Company Number: GXBR2016US002989

PATIENT
  Sex: Female

DRUGS (1)
  1. TRI-LO- ESTARYLLA [Suspect]
     Active Substance: ETHINYL ESTRADIOL\NORGESTIMATE
     Dosage: UNK DF, UNK
     Route: 048

REACTIONS (2)
  - Nausea [Unknown]
  - Extra dose administered [Not Recovered/Not Resolved]
